FAERS Safety Report 8129329-0 (Version None)
Quarter: 2012Q1

REPORT INFORMATION
  Report Type: 
  Country: None (occurrence: None)
  Receive Date: 20120210
  Receipt Date: 20120203
  Transmission Date: 20120608
  Serious: Yes (Death, Hospitalization)
  Sender: FDA-Public Use
  Company Number: PHHY2012FR010507

PATIENT
  Age: 51 Year
  Sex: Female

DRUGS (8)
  1. LEVOTHYROXINE SODIUM [Concomitant]
  2. AMANTADINE HCL [Suspect]
  3. BETAMETHASONE [Concomitant]
  4. BENZODIAZEPINES [Concomitant]
  5. SALMETEROL [Concomitant]
  6. ESTRADIOL [Suspect]
  7. PROPRANOLOL [Concomitant]
  8. TERIFLUNOMIDE [Concomitant]
     Dosage: 14 MG, UNK
     Route: 048

REACTIONS (5)
  - MALAISE [None]
  - SUDDEN CARDIAC DEATH [None]
  - ANXIETY [None]
  - TACHYCARDIA [None]
  - HYPOTENSION [None]
